FAERS Safety Report 15226584 (Version 1)
Quarter: 2018Q3

REPORT INFORMATION
  Report Type: Spontaneous
  Country: US (occurrence: US)
  Receive Date: 20180706
  Receipt Date: 20180706
  Transmission Date: 20181010
  Serious: Yes (Life-Threatening, Hospitalization)
  Sender: FDA-Public Use
  Company Number: None

PATIENT
  Age: 59 Year
  Sex: Male
  Weight: 95.3 kg

DRUGS (3)
  1. IOPAMIDOL 76% INJECTION 115ML [Concomitant]
  2. ACTIVASE [Suspect]
     Active Substance: ALTEPLASE
     Indication: CEREBROVASCULAR ACCIDENT
     Route: 042
     Dates: start: 20180324, end: 20180324
  3. ONDANSETRON INJECTION 4MG [Concomitant]

REACTIONS (4)
  - Angioedema [None]
  - Pharyngeal oedema [None]
  - Swollen tongue [None]
  - Stridor [None]

NARRATIVE: CASE EVENT DATE: 20180325
